FAERS Safety Report 12091517 (Version 1)
Quarter: 2016Q1

REPORT INFORMATION
  Report Type: Spontaneous
  Country: IN (occurrence: IN)
  Receive Date: 20160218
  Receipt Date: 20160218
  Transmission Date: 20160526
  Serious: Yes (Other)
  Sender: FDA-Public Use
  Company Number: PHHY2016IN019253

PATIENT
  Age: 29 Year
  Sex: Male

DRUGS (1)
  1. DOXYCYCLINE. [Suspect]
     Active Substance: DOXYCYCLINE
     Indication: HORDEOLUM
     Dosage: 500 MG, ONCE/SINGLE
     Route: 048

REACTIONS (1)
  - Fixed drug eruption [Unknown]
